FAERS Safety Report 8823829 (Version 3)
Quarter: 2013Q1

REPORT INFORMATION
  Report Type: Report from Study
  Country: FR (occurrence: FR)
  Receive Date: 20121003
  Receipt Date: 20130313
  Transmission Date: 20140127
  Serious: Yes (Hospitalization)
  Sender: FDA-Public Use
  Company Number: FR-PFIZER INC-2012238726

PATIENT
  Age: 72 Year
  Sex: Male

DRUGS (8)
  1. AXITINIB [Suspect]
     Indication: COLORECTAL CANCER METASTATIC
     Dosage: 5 MG, 2X/DAY
     Route: 048
     Dates: start: 20120127, end: 20120202
  2. AXITINIB [Suspect]
     Dosage: 7 MG, 2X/DAY
     Route: 048
     Dates: start: 20120210, end: 20120216
  3. AXITINIB [Suspect]
     Dosage: 6 MG, 2X/DAY
     Route: 048
     Dates: start: 20120224, end: 20120301
  4. AXITINIB [Suspect]
     Dosage: 3 MG, 2X/DAY
     Route: 048
     Dates: start: 20120313, end: 20120508
  5. AXITINIB [Suspect]
     Dosage: 6 MG, 2X/DAY
     Route: 048
     Dates: start: 20120608, end: 20120924
  6. CAMPTO [Suspect]
     Indication: COLORECTAL CANCER METASTATIC
     Dosage: UNK
     Dates: start: 20120309, end: 20120914
  7. FLUOROURACIL [Suspect]
     Indication: COLORECTAL CANCER METASTATIC
     Dosage: UNK
     Route: 040
     Dates: start: 20120309, end: 20120427
  8. FLUOROURACIL [Suspect]
     Dosage: UNK
     Route: 041
     Dates: start: 20120309, end: 20120914

REACTIONS (1)
  - Intestinal obstruction [Unknown]
